FAERS Safety Report 24429294 (Version 1)
Quarter: 2024Q4

REPORT INFORMATION
  Report Type: Spontaneous
  Country: US (occurrence: US)
  Receive Date: 20241011
  Receipt Date: 20241011
  Transmission Date: 20250115
  Serious: No
  Sender: LGM PHARMA
  Company Number: US-LGM Pharma Solutions, LLC-2162900

PATIENT
  Age: 53 Year
  Sex: Male

DRUGS (1)
  1. CHENODAL [Suspect]
     Active Substance: CHENODIOL
     Indication: Lipid metabolism disorder
     Dates: start: 20170625

REACTIONS (7)
  - Mobility decreased [Unknown]
  - Urinary tract disorder [Unknown]
  - Depression [Unknown]
  - Meniscus operation [Unknown]
  - Arthralgia [Unknown]
  - Arthralgia [Unknown]
  - Pain in extremity [Unknown]
